FAERS Safety Report 6509440-8 (Version None)
Quarter: 2009Q4

REPORT INFORMATION
  Report Type: 
  Country: None (occurrence: None)
  Receive Date: 20091222
  Receipt Date: 20091211
  Transmission Date: 20100525
  Serious: Yes (Other)
  Sender: FDA-Public Use
  Company Number: US-JNJFOC-20091204247

PATIENT
  Sex: Female
  Weight: 75.75 kg

DRUGS (5)
  1. REMICADE [Suspect]
     Indication: RHEUMATOID ARTHRITIS
     Route: 042
     Dates: start: 20090512
  2. METHOTREXATE [Concomitant]
     Indication: RHEUMATOID ARTHRITIS
  3. ULTRAM ER [Concomitant]
  4. AMBIEN [Concomitant]
     Dosage: AS NCESSARY
  5. PREVACID [Concomitant]

REACTIONS (1)
  - PARTIAL SEIZURES [None]
